FAERS Safety Report 15214354 (Version 1)
Quarter: 2018Q4

REPORT INFORMATION
  Report Type: Spontaneous
  Country: US (occurrence: US)
  Receive Date: 20180730
  Receipt Date: 20180730
  Transmission Date: 20190204
  Serious: No
  Sender: FDA-Public Use
  Company Number: US-SA-2018SA203940

PATIENT
  Sex: Female

DRUGS (1)
  1. SELSUN BLUE DEEP CLEANSING MICRO-BEAD SCRUB [Suspect]
     Active Substance: SALICYLIC ACID
     Indication: DANDRUFF
     Dosage: UNK
     Dates: start: 20180514

REACTIONS (4)
  - Skin exfoliation [Unknown]
  - Dandruff [Unknown]
  - Condition aggravated [Unknown]
  - Dry skin [Unknown]
